FAERS Safety Report 6217807-0 (Version None)
Quarter: 2009Q2

REPORT INFORMATION
  Report Type: 
  Country: None (occurrence: None)
  Receive Date: 20090608
  Receipt Date: 20090605
  Transmission Date: 20091009
  Serious: Yes (Hospitalization)
  Sender: FDA-Public Use
  Company Number: FR-JNJFOC-20090601816

PATIENT
  Age: 54 Year
  Sex: Male

DRUGS (4)
  1. OFLOCET [Suspect]
     Indication: AGRANULOCYTOSIS
     Route: 065
  2. AUGMENTIN [Suspect]
     Indication: AGRANULOCYTOSIS
     Route: 048
  3. COMBIVIR [Concomitant]
     Indication: HIV TEST POSITIVE
     Route: 048
  4. KALETRA [Concomitant]
     Indication: HIV TEST POSITIVE
     Route: 048

REACTIONS (2)
  - DRUG ERUPTION [None]
  - THROMBOCYTOPENIA [None]
